FAERS Safety Report 8421729-4 (Version None)
Quarter: 2012Q2

REPORT INFORMATION
  Report Type: 
  Country: None (occurrence: None)
  Receive Date: 20120323
  Receipt Date: 20111216
  Transmission Date: 20120825
  Serious: Yes (Hospitalization)
  Sender: FDA-Public Use
  Company Number: 163-21880-11122359

PATIENT
  Age: 70 Year
  Sex: Female

DRUGS (3)
  1. REVLIMID [Suspect]
     Indication: MULTIPLE MYELOMA
     Dosage: 10 MG, 1 IN 1 D, PO ; 25 MG, 1 IN 1 D, PO ; 5 MG, DAILY FOR 21 DAYS, PO
     Route: 048
     Dates: start: 20071201
  2. REVLIMID [Suspect]
     Indication: MULTIPLE MYELOMA
     Dosage: 10 MG, 1 IN 1 D, PO ; 25 MG, 1 IN 1 D, PO ; 5 MG, DAILY FOR 21 DAYS, PO
     Route: 048
     Dates: start: 20110301
  3. REVLIMID [Suspect]
     Indication: MULTIPLE MYELOMA
     Dosage: 10 MG, 1 IN 1 D, PO ; 25 MG, 1 IN 1 D, PO ; 5 MG, DAILY FOR 21 DAYS, PO
     Route: 048
     Dates: start: 20080401

REACTIONS (1)
  - DIARRHOEA [None]
